FAERS Safety Report 6238052-9 (Version None)
Quarter: 2009Q2

REPORT INFORMATION
  Report Type: 
  Country: None (occurrence: None)
  Receive Date: 20090622
  Receipt Date: 20090619
  Transmission Date: 20091009
  Serious: Yes (Death, Congenital Anomaly)
  Sender: FDA-Public Use
  Company Number: US-ASTRAZENECA-2009UW15967

PATIENT
  Age: 0 Week
  Sex: Male
  Weight: 6.1 kg

DRUGS (6)
  1. CRESTOR [Suspect]
     Route: 064
  2. REBIF [Suspect]
     Route: 064
     Dates: start: 20060426, end: 20070526
  3. NEURONTIN [Suspect]
     Route: 064
     Dates: end: 20070526
  4. DITROPAN [Suspect]
     Route: 064
     Dates: end: 20070526
  5. PROVIGIL [Suspect]
     Route: 064
     Dates: end: 20070526
  6. GLUCOVANCE [Suspect]
     Route: 064
     Dates: end: 20070526

REACTIONS (6)
  - CONGENITAL ANOMALY [None]
  - CONGENITAL MUSCULOSKELETAL ANOMALY [None]
  - LIMB MALFORMATION [None]
  - PULMONARY HYPOPLASIA [None]
  - RIB HYPOPLASIA [None]
  - SPINE MALFORMATION [None]
